FAERS Safety Report 21103045 (Version 1)
Quarter: 2022Q3

REPORT INFORMATION
  Report Type: Spontaneous
  Country: NL (occurrence: NL)
  Receive Date: 20220720
  Receipt Date: 20220720
  Transmission Date: 20221026
  Serious: Yes (Hospitalization)
  Sender: FDA-Public Use
  Company Number: None

PATIENT
  Age: 76 Year
  Sex: Female
  Weight: 60 kg

DRUGS (6)
  1. EZETIMIBE [Suspect]
     Active Substance: EZETIMIBE
     Indication: Blood cholesterol increased
     Dosage: EZETIMIB TABLET 10MG / BRAND NAME NOT SPECIFIED, THERAPY END DATE : ASKU
     Dates: start: 202201
  2. REPATHA [Suspect]
     Active Substance: EVOLOCUMAB
     Indication: Blood cholesterol increased
     Dosage: 1X EVERY 2 WEEKS + EZETIMIBE 10MG, EVOLOCUMAB INJVLST 140MG/ML / REPATHA INJVLST 140MG/ML PEN 1ML, T
     Dates: start: 202201
  3. SPIRONOLACTONE [Concomitant]
     Active Substance: SPIRONOLACTONE
     Indication: Product used for unknown indication
     Dosage: STRENGTH: 25MG / BRAND NAME NOT SPECIFIED, THERAPY START DATE AND END DATE : ASKU
  4. CANDESARTAN [Concomitant]
     Active Substance: CANDESARTAN
     Indication: Product used for unknown indication
     Dosage: STRENGTH: 8MG / BRAND NAME NOT SPECIFIED, THERAPY START DATE AND END DATE : ASKU
  5. ASCAL [Concomitant]
     Indication: Product used for unknown indication
     Dosage: CARBASALATE CALCIUM EFFERVESCENT TABLET 38MG / ASCAL BRISPER EFFERVESCENT TABLET 38MG, THERAPY START
  6. CLOPIDOGREL BESILATE [Concomitant]
     Active Substance: CLOPIDOGREL BESILATE
     Indication: Product used for unknown indication
     Dosage: CLOPIDOGREL TABLET 75MG / GREPID TABLET FILM COATED 75MG, THERAPY START DATE AND END DATE : ASKU

REACTIONS (3)
  - Palpitations [Not Recovered/Not Resolved]
  - Muscle spasms [Not Recovered/Not Resolved]
  - Tremor [Not Recovered/Not Resolved]

NARRATIVE: CASE EVENT DATE: 20220116
